FAERS Safety Report 6996016-1 (Version None)
Quarter: 2010Q3

REPORT INFORMATION
  Report Type: 
  Country: None (occurrence: None)
  Receive Date: 20100918
  Receipt Date: 20081209
  Transmission Date: 20110219
  Serious: No
  Sender: FDA-Public Use
  Company Number: US-WYE-H07185008

PATIENT
  Age: 45 Year
  Sex: Female
  Weight: 56.75 kg

DRUGS (2)
  1. ADVIL COLD AND SINUS [Suspect]
     Indication: SINUS DISORDER
     Dosage: 1 LIQUI-GEL EVERY 8 TO 12 HOURS AS NEEDED
     Route: 048
     Dates: start: 20060101
  2. IBUPROFEN [Concomitant]

REACTIONS (1)
  - RENAL PAIN [None]
